FAERS Safety Report 7462431-5 (Version None)
Quarter: 2011Q2

REPORT INFORMATION
  Report Type: 
  Country: None (occurrence: None)
  Receive Date: 20110506
  Receipt Date: 20110426
  Transmission Date: 20111010
  Serious: Yes (Hospitalization)
  Sender: FDA-Public Use
  Company Number: US-BRISTOL-MYERS SQUIBB COMPANY-15721814

PATIENT
  Age: 56 Year
  Sex: Male

DRUGS (4)
  1. ALIMTA [Suspect]
     Indication: NON-SMALL CELL LUNG CANCER
     Dosage: VIAL
     Route: 042
     Dates: start: 20100423, end: 20100524
  2. FOLIC ACID [Concomitant]
  3. ERBITUX [Suspect]
     Indication: NON-SMALL CELL LUNG CANCER
     Dosage: VIAL
     Route: 042
     Dates: start: 20100423, end: 20100601
  4. CISPLATIN [Suspect]
     Indication: NON-SMALL CELL LUNG CANCER
     Route: 042
     Dates: start: 20100423, end: 20100524

REACTIONS (3)
  - PNEUMONIA [None]
  - LUNG INFILTRATION [None]
  - PLEURAL EFFUSION [None]
